FAERS Safety Report 7561147-4 (Version None)
Quarter: 2011Q2

REPORT INFORMATION
  Report Type: 
  Country: None (occurrence: None)
  Receive Date: 20110620
  Receipt Date: 20110620
  Transmission Date: 20111010
  Serious: Yes (Hospitalization)
  Sender: FDA-Public Use
  Company Number: None

PATIENT
  Sex: Female
  Weight: 59.7 kg

DRUGS (13)
  1. ZOFRAN [Concomitant]
  2. CYTARABINE [Suspect]
     Dosage: 1968 MG
  3. VICODIN ES [Concomitant]
  4. PEG-L ASPARAGINASE (K-H) [Suspect]
     Dosage: 8200 UNIT
  5. MERCAPTOPURINE [Suspect]
     Dosage: 2800 MG
  6. VINCRISTINE SULFATE [Suspect]
     Dosage: 8 MG
  7. CYCLOPHOSPHAMIDE [Suspect]
     Dosage: 3290 MG
  8. ETHYNOIDIOL DIACETATE-ETHINYL ESTRADIOL [Concomitant]
  9. METHOTREXATE [Suspect]
     Dosage: 60 MG
  10. ZOLPIDEM [Concomitant]
  11. BACTRIM [Concomitant]
  12. LORAZEPAM [Concomitant]
  13. OMEPRAZOLE [Concomitant]

REACTIONS (1)
  - ANAL FISSURE [None]
